FAERS Safety Report 4490268-8 (Version None)
Quarter: 2004Q4

REPORT INFORMATION
  Report Type: 
  Country: None (occurrence: None)
  Receive Date: 20041028
  Receipt Date: 20041014
  Transmission Date: 20050328
  Serious: Yes (Hospitalization)
  Sender: FDA-Public Use
  Company Number: 204133

PATIENT
  Age: 56 Year
  Sex: Male
  Weight: 104.3273 kg

DRUGS (1)
  1. AVONEX [Suspect]
     Indication: MULTIPLE SCLEROSIS
     Dosage: 30 MCG QW IM
     Route: 030
     Dates: start: 20040701

REACTIONS (18)
  - ASTHENIA [None]
  - BLOOD GLUCOSE INCREASED [None]
  - BODY TEMPERATURE INCREASED [None]
  - COMA [None]
  - DELUSION [None]
  - DIABETES MELLITUS [None]
  - DIABETIC KETOACIDOSIS [None]
  - FALL [None]
  - INFLUENZA LIKE ILLNESS [None]
  - LETHARGY [None]
  - LOSS OF CONSCIOUSNESS [None]
  - LOSS OF CONTROL OF LEGS [None]
  - MIGRAINE [None]
  - MULTIPLE SCLEROSIS [None]
  - MYALGIA [None]
  - POLLAKIURIA [None]
  - SKIN LACERATION [None]
  - UPPER LIMB FRACTURE [None]
